FAERS Safety Report 11895740 (Version 4)
Quarter: 2016Q2

REPORT INFORMATION
  Report Type: Report from Study
  Country: US (occurrence: US)
  Receive Date: 20160107
  Receipt Date: 20160519
  Transmission Date: 20160815
  Serious: Yes (Other)
  Sender: FDA-Public Use
  Company Number: PHEH2016US000593

PATIENT
  Age: 50 Year
  Sex: Male
  Weight: 99.27 kg

DRUGS (1)
  1. GILENYA [Suspect]
     Active Substance: FINGOLIMOD HYDROCHLORIDE
     Indication: MULTIPLE SCLEROSIS
     Dosage: 0.5 MG, QD
     Route: 048

REACTIONS (4)
  - Dysphagia [Recovering/Resolving]
  - Muscular weakness [Recovering/Resolving]
  - Multiple sclerosis relapse [Recovered/Resolved]
  - Speech disorder [Recovering/Resolving]

NARRATIVE: CASE EVENT DATE: 20151231
